FAERS Safety Report 6529003-8 (Version None)
Quarter: 2009Q4

REPORT INFORMATION
  Report Type: 
  Country: None (occurrence: None)
  Receive Date: 20091230
  Receipt Date: 20091221
  Transmission Date: 20100525
  Serious: Yes (Death)
  Sender: FDA-Public Use
  Company Number: WAES 0912USA03090

PATIENT

DRUGS (5)
  1. DECADRON [Suspect]
     Dosage: 4 MG/BID PO
     Route: 048
  2. DECADRON [Suspect]
     Indication: PREMEDICATION
     Dosage: 8 MG/UNK IV
     Route: 042
  3. DOCETAXEL [Suspect]
     Indication: NON-SMALL CELL LUNG CANCER
     Dosage: 35 MG/M [2] /UNK IV
     Route: 042
  4. CISPLATIN [Suspect]
     Indication: NON-SMALL CELL LUNG CANCER
     Dosage: 25 MG/M [2] /UNK IV
     Route: 042
  5. ONDANSETRON [Concomitant]

REACTIONS (1)
  - PNEUMONIA [None]
